FAERS Safety Report 8602010-7 (Version None)
Quarter: 2012Q3

REPORT INFORMATION
  Report Type: 
  Country: None (occurrence: None)
  Receive Date: 20120817
  Receipt Date: 20120801
  Transmission Date: 20120928
  Serious: Yes (Hospitalization)
  Sender: FDA-Public Use
  Company Number: NL-US-EMD SERONO, INC.-7088134

PATIENT
  Sex: Male
  Weight: 78 kg

DRUGS (6)
  1. FLUTICASON [Concomitant]
     Indication: HEADACHE
  2. REBIF [Suspect]
     Route: 058
     Dates: start: 20110816, end: 20110911
  3. REBIF [Suspect]
     Route: 058
     Dates: start: 20110913, end: 20120315
  4. REBIF [Suspect]
     Indication: MULTIPLE SCLEROSIS
     Route: 058
  5. DOXYCYCLINE HCL [Concomitant]
     Indication: SINUSITIS
     Route: 048
     Dates: start: 20110901, end: 20110908
  6. FLUTICASON [Concomitant]
     Indication: SINUSITIS

REACTIONS (3)
  - MIGRAINE [None]
  - SINUSITIS [None]
  - INFLUENZA LIKE ILLNESS [None]
